FAERS Safety Report 9700844 (Version 2)
Quarter: 2013Q4

REPORT INFORMATION
  Report Type: Spontaneous
  Country: CA (occurrence: CA)
  Receive Date: 20131121
  Receipt Date: 20131206
  Transmission Date: 20140711
  Serious: No
  Sender: FDA-Public Use
  Company Number: 2013SP003404

PATIENT
  Age: 68 Year
  Sex: Female

DRUGS (5)
  1. LATUDA [Suspect]
     Route: 048
  2. LITHIUM [Concomitant]
     Indication: AFFECTIVE DISORDER
     Route: 048
  3. CHOLESTEROL [Concomitant]
     Indication: BLOOD CHOLESTEROL
     Route: 048
  4. FUROSEMIDE [Concomitant]
     Route: 048
  5. ASA [Concomitant]
     Route: 048

REACTIONS (13)
  - Eye swelling [Recovered/Resolved]
  - Facial paresis [Recovered/Resolved]
  - Pain in extremity [Recovered/Resolved]
  - Feeling hot [Recovered/Resolved]
  - Fall [Recovered/Resolved]
  - Pollakiuria [Recovered/Resolved]
  - Hunger [Recovered/Resolved]
  - Thirst [Recovered/Resolved]
  - Muscular weakness [Recovered/Resolved]
  - Hypoaesthesia [Recovered/Resolved]
  - Blood glucose increased [Recovered/Resolved]
  - Dysarthria [Recovered/Resolved]
  - Dizziness [Recovered/Resolved]
